FAERS Safety Report 9477878 (Version 1)
Quarter: 2013Q3

REPORT INFORMATION
  Report Type: Spontaneous
  Country: US (occurrence: US)
  Receive Date: 20130827
  Receipt Date: 20130827
  Transmission Date: 20140515
  Serious: Yes (Other)
  Sender: FDA-Public Use
  Company Number: US-RANBAXY-2013US-72408

PATIENT
  Age: 36 Year
  Sex: Male

DRUGS (3)
  1. DULOXETINE [Suspect]
     Indication: DEPRESSION
     Dosage: UNK
     Route: 065
  2. ZOLPIDEM [Interacting]
     Indication: PRODUCT USED FOR UNKNOWN INDICATION
     Dosage: UNK
     Route: 065
     Dates: start: 200307
  3. INSULIN [Concomitant]
     Indication: TYPE 1 DIABETES MELLITUS
     Dosage: UNK
     Route: 065
     Dates: start: 2001

REACTIONS (4)
  - Sleep-related eating disorder [Unknown]
  - Drug interaction [Recovered/Resolved]
  - Palpitations [Unknown]
  - Hyperglycaemia [Recovered/Resolved]
